FAERS Safety Report 7031186-0 (Version None)
Quarter: 2010Q4

REPORT INFORMATION
  Report Type: 
  Country: None (occurrence: None)
  Receive Date: 20101006
  Receipt Date: 20100921
  Transmission Date: 20110411
  Serious: Yes (Other)
  Sender: FDA-Public Use
  Company Number: PHEH2006US11227

PATIENT
  Sex: Female
  Weight: 77.551 kg

DRUGS (29)
  1. ZOMETA [Suspect]
     Dosage: 4 MG,
     Route: 042
     Dates: start: 20030101, end: 20050926
  2. EFFEXOR [Concomitant]
     Dosage: 75 MG, TID
  3. VERAPAMIL [Concomitant]
     Indication: HYPERTENSION
     Dosage: 240 MG, QD
  4. LEXAPRO [Concomitant]
  5. PERCOCET [Concomitant]
  6. PRILOSEC [Concomitant]
  7. DICLOFENAC SODIUM [Concomitant]
  8. NORTRIPTYLINE [Concomitant]
  9. WELLBUTRIN [Concomitant]
  10. KLONOPIN [Concomitant]
  11. ATIVAN [Concomitant]
  12. VITAMIN B-12 [Concomitant]
  13. DOXYCYCLINE [Concomitant]
  14. ADVIL LIQUI-GELS [Concomitant]
  15. CALCIUM WITH VITAMIN D [Concomitant]
  16. STEROIDS NOS [Concomitant]
  17. ZYRTEC [Concomitant]
  18. MOTRIN [Concomitant]
  19. AMOXIL ^AYERST LAB^ [Concomitant]
  20. AMBIEN [Concomitant]
  21. VIOXX [Concomitant]
  22. VICODIN [Concomitant]
  23. CELEBREX [Concomitant]
  24. KEFLEX [Concomitant]
  25. BEXTRA [Concomitant]
  26. SPIRIVA [Concomitant]
  27. PROVENTIL [Concomitant]
  28. SANDOSTATIN [Concomitant]
  29. IMODIUM [Concomitant]

REACTIONS (70)
  - ACTINOMYCOSIS [None]
  - ANXIETY [None]
  - ARTHRALGIA [None]
  - ARTHRITIS [None]
  - BACK PAIN [None]
  - BARRETT'S OESOPHAGUS [None]
  - BONE DISORDER [None]
  - BONE PAIN [None]
  - BREAST TENDERNESS [None]
  - CARPAL TUNNEL SYNDROME [None]
  - CHONDROPLASTY [None]
  - CHRONIC OBSTRUCTIVE PULMONARY DISEASE [None]
  - DEBRIDEMENT [None]
  - DECREASED INTEREST [None]
  - DIARRHOEA [None]
  - EAR PAIN [None]
  - EPICONDYLITIS [None]
  - ERYTHEMA [None]
  - FACET JOINT SYNDROME [None]
  - FACIAL PAIN [None]
  - FUNGAL INFECTION [None]
  - FURUNCLE [None]
  - GAIT DISTURBANCE [None]
  - GASTROINTESTINAL HAEMORRHAGE [None]
  - GENERAL PHYSICAL HEALTH DETERIORATION [None]
  - GINGIVAL OPERATION [None]
  - GINGIVAL ULCERATION [None]
  - HAEMATOCHEZIA [None]
  - HAEMOPTYSIS [None]
  - HEADACHE [None]
  - HERPES ZOSTER [None]
  - HYPOAESTHESIA [None]
  - IMPAIRED WORK ABILITY [None]
  - INTERVERTEBRAL DISC DEGENERATION [None]
  - INTESTINAL POLYP [None]
  - JAW OPERATION [None]
  - LIBIDO DECREASED [None]
  - LUMBAR RADICULOPATHY [None]
  - LUMBAR SPINAL STENOSIS [None]
  - LYMPHADENOPATHY [None]
  - MASTICATION DISORDER [None]
  - MENISCUS LESION [None]
  - MUCOSAL ULCERATION [None]
  - MULTIPLE MYELOMA [None]
  - MUSCULAR WEAKNESS [None]
  - NEUROPATHY PERIPHERAL [None]
  - ORAL DISORDER [None]
  - ORAL INFECTION [None]
  - OSTEOARTHRITIS [None]
  - OSTEOMYELITIS [None]
  - OSTEONECROSIS OF JAW [None]
  - OSTEOPOROSIS [None]
  - OSTEOSCLEROSIS [None]
  - PAIN [None]
  - PAIN IN EXTREMITY [None]
  - PARAESTHESIA [None]
  - PERIODONTAL DESTRUCTION [None]
  - PHARYNGEAL OEDEMA [None]
  - RENAL CYST [None]
  - RESTLESS LEGS SYNDROME [None]
  - RIB FRACTURE [None]
  - SCOLIOSIS [None]
  - SLEEP APNOEA SYNDROME [None]
  - SPINAL OSTEOARTHRITIS [None]
  - TENDERNESS [None]
  - TOOTH LOSS [None]
  - TREMOR [None]
  - VITAMIN B12 DEFICIENCY [None]
  - VULVOVAGINAL DRYNESS [None]
  - WOUND DEHISCENCE [None]
